FAERS Safety Report 7539628-9 (Version None)
Quarter: 2011Q2

REPORT INFORMATION
  Report Type: 
  Country: None (occurrence: None)
  Receive Date: 20110610
  Receipt Date: 20110602
  Transmission Date: 20111010
  Serious: Yes (Other)
  Sender: FDA-Public Use
  Company Number: US-JNJFOC-20110205822

PATIENT
  Age: 89 Year
  Sex: Female
  Weight: 56.7 kg

DRUGS (5)
  1. BENADRYL [Suspect]
     Route: 048
     Dates: start: 20110409, end: 20110413
  2. BENADRYL [Suspect]
     Route: 048
     Dates: start: 20110426, end: 20110430
  3. LOTREL [Concomitant]
     Indication: HYPERTENSION
     Dosage: ONE PILL AT NIGHT
     Route: 048
     Dates: start: 20010101
  4. BENADRYL [Suspect]
     Indication: PRURITUS
     Dosage: ONE TEASPOONFUL
     Route: 048
     Dates: start: 20110115, end: 20110120
  5. SYNTHROID [Concomitant]
     Indication: HYPOTHYROIDISM
     Dosage: ONE PILL
     Route: 048
     Dates: start: 20010101

REACTIONS (4)
  - AMNESIA [None]
  - FEELING ABNORMAL [None]
  - OFF LABEL USE [None]
  - PRODUCT QUALITY ISSUE [None]
